FAERS Safety Report 10637288 (Version 3)
Quarter: 2015Q1

REPORT INFORMATION
  Report Type: Spontaneous
  Country: NL (occurrence: NL)
  Receive Date: 20141208
  Receipt Date: 20150128
  Transmission Date: 20150720
  Serious: Yes (Hospitalization)
  Sender: FDA-Public Use
  Company Number: NL-JNJFOC-20141202135

PATIENT
  Age: 42 Year
  Sex: Female

DRUGS (2)
  1. REMICADE [Suspect]
     Active Substance: INFLIXIMAB
     Indication: HIDRADENITIS
     Dosage: ONCE EVERY 8-12 WEEKS
     Route: 042
     Dates: start: 20140919, end: 20140919
  2. REMICADE [Suspect]
     Active Substance: INFLIXIMAB
     Indication: HIDRADENITIS
     Dosage: ONCE EVERY 8-10 WEEKS
     Route: 042
     Dates: start: 20101021

REACTIONS (2)
  - Myocardial infarction [Recovered/Resolved]
  - Product use issue [Unknown]

NARRATIVE: CASE EVENT DATE: 20141114
